FAERS Safety Report 10687708 (Version 1)
Quarter: 2014Q4

REPORT INFORMATION
  Report Type: Spontaneous
  Country: US (occurrence: None)
  Receive Date: 20141231
  Receipt Date: 20141231
  Transmission Date: 20150529
  Serious: Yes (Other)
  Sender: FDA-Public Use
  Company Number: None

PATIENT
  Age: 65 Year
  Sex: Male
  Weight: 102.06 kg

DRUGS (4)
  1. AVODART [Suspect]
     Active Substance: DUTASTERIDE
     Indication: DRUG THERAPY
     Dosage: 1 CAPSULE
     Route: 048
     Dates: start: 20141206, end: 20141230
  2. TAMSULOSIN [Suspect]
     Active Substance: TAMSULOSIN
     Indication: DRUG THERAPY
     Dosage: 1 CAPSULE
     Route: 048
     Dates: start: 20120330, end: 20141230
  3. AVODART [Suspect]
     Active Substance: DUTASTERIDE
     Indication: PROSTATOMEGALY
     Dosage: 1 CAPSULE
     Route: 048
     Dates: start: 20141206, end: 20141230
  4. TAMSULOSIN [Suspect]
     Active Substance: TAMSULOSIN
     Indication: PROSTATOMEGALY
     Dosage: 1 CAPSULE
     Route: 048
     Dates: start: 20120330, end: 20141230

REACTIONS (1)
  - Bladder cancer [None]

NARRATIVE: CASE EVENT DATE: 20141205
